FAERS Safety Report 10033182 (Version 2)
Quarter: 2014Q3

REPORT INFORMATION
  Report Type: Spontaneous
  Country: JP (occurrence: JP)
  Receive Date: 20140324
  Receipt Date: 20140821
  Transmission Date: 20150326
  Serious: Yes (Other)
  Sender: FDA-Public Use
  Company Number: JP-TAKEDA-2014TEU002263

PATIENT
  Age: 65 Year
  Sex: Female

DRUGS (17)
  1. BAYASPIRIN [Concomitant]
     Active Substance: ASPIRIN
     Indication: MITRAL VALVE INCOMPETENCE
     Dosage: 100 MG, QD
     Dates: start: 20130903
  2. PLATELETS [Concomitant]
     Active Substance: HUMAN PLATELET, ALLOGENIC
     Indication: MITRAL VALVE INCOMPETENCE
     Dosage: 20 UNITS, QD
     Dates: start: 20131004, end: 20131004
  3. PLASMA, FRESH FROZEN [Concomitant]
     Active Substance: HUMAN PLASMA
     Indication: MITRAL VALVE INCOMPETENCE
     Dosage: 8 UNITS, QD
     Dates: start: 20131004, end: 20131004
  4. PREDNISOLONE. [Concomitant]
     Active Substance: PREDNISOLONE
     Indication: RHEUMATIC DISORDER
     Dosage: 2 MG, QD (BEFORE THE SURGERY)
  5. RED BLOOD CELLS, CONCENTRATED [Concomitant]
     Active Substance: HUMAN RED BLOOD CELL
     Dosage: 6 UNITS, QD (AFTER SURGERY)
  6. PLAVIX [Concomitant]
     Active Substance: CLOPIDOGREL BISULFATE
     Indication: MITRAL VALVE INCOMPETENCE
     Dosage: 75 MG, QD (BEFORE THE SURGERY)
  7. TACHOSIL [Suspect]
     Active Substance: FIBRINOGEN HUMAN\THROMBIN HUMAN
     Indication: PROPHYLAXIS
     Dosage: 1 SHEET OF REGULAR SIZE/1DAY
     Route: 065
     Dates: start: 20131004
  8. WARFARIN [Concomitant]
     Active Substance: WARFARIN
     Indication: MITRAL VALVE INCOMPETENCE
     Dosage: 3 MG, QD
     Dates: start: 20131008
  9. FOLIAMIN [Concomitant]
     Active Substance: FOLIC ACID
     Indication: ANAEMIA
     Dosage: 5 MG, 1/WEEK (BEFORE THE SURGERY)
  10. RED BLOOD CELLS, CONCENTRATED [Concomitant]
     Active Substance: HUMAN RED BLOOD CELL
     Indication: MITRAL VALVE INCOMPETENCE
     Dosage: 18 UNITS, QD (DURING SURGERY), 6UNIT/1DAY (AFTER SURGERY)
     Dates: start: 20131004, end: 20131004
  11. NORVASC [Concomitant]
     Active Substance: AMLODIPINE BESYLATE
     Indication: HYPERTENSION
     Dosage: 5 MG, QD (BEFORE THE SURGERY)
  12. RISPERDAL [Concomitant]
     Active Substance: RISPERIDONE
     Indication: DELIRIUM
     Dosage: 0.5 MG, PRN
     Dates: start: 20131010
  13. AVAPRO [Concomitant]
     Active Substance: IRBESARTAN
     Dosage: 100 MG, QD (BEFORE THE SURGERY)
  14. MAINTATE [Concomitant]
     Active Substance: BISOPROLOL FUMARATE
     Indication: HYPERTENSION
     Dosage: 25 MG, QD (BEFORE THE SURGERY)
  15. ACTONEL [Concomitant]
     Active Substance: RISEDRONATE SODIUM
     Indication: OSTEOPOROSIS
     Dosage: 17.5 MG, 1/WEEK
  16. RHEUMATREX [Concomitant]
     Active Substance: METHOTREXATE SODIUM
     Indication: RHEUMATIC DISORDER
     Dosage: 2 MG, TID (BEFORE THE SURGERY)
  17. ARTIST [Concomitant]
     Active Substance: CARVEDILOL
     Indication: MITRAL VALVE INCOMPETENCE
     Dosage: 5 MG, QOD
     Dates: start: 20131015

REACTIONS (2)
  - Anaemia [Recovering/Resolving]
  - Delirium [Recovering/Resolving]

NARRATIVE: CASE EVENT DATE: 20131004
